FAERS Safety Report 17547635 (Version 1)
Quarter: 2020Q1

REPORT INFORMATION
  Report Type: Spontaneous
  Country: US (occurrence: US)
  Receive Date: 20200317
  Receipt Date: 20200317
  Transmission Date: 20200409
  Serious: No
  Sender: FDA-Public Use
  Company Number: US-EMCURE PHARMACEUTICALS LTD-2019-EPL-0761

PATIENT
  Age: 71 Year
  Sex: Female
  Weight: 98.41 kg

DRUGS (5)
  1. KETOPROFEN. [Suspect]
     Active Substance: KETOPROFEN
     Indication: ARTHRALGIA
  2. KETOPROFEN. [Suspect]
     Active Substance: KETOPROFEN
     Indication: OSTEOARTHRITIS
  3. KETOPROFEN. [Suspect]
     Active Substance: KETOPROFEN
     Indication: LYMPHOEDEMA
     Dosage: 25 MG, 3X/DAY, WITH FOOD, AT BREAKFAST, LUNCH, AND DINNER
     Route: 048
     Dates: start: 201905, end: 201905
  4. COUMADIN [Concomitant]
     Active Substance: WARFARIN SODIUM
     Dosage: 2.5 MG, 1X/DAY, AT BEDTIME
     Dates: start: 201810
  5. KETOPROFEN. [Suspect]
     Active Substance: KETOPROFEN
     Indication: FIBROMYALGIA

REACTIONS (1)
  - Hypersensitivity [Recovered/Resolved]

NARRATIVE: CASE EVENT DATE: 201905
